FAERS Safety Report 4343631-X (Version None)
Quarter: 2004Q2

REPORT INFORMATION
  Report Type: 
  Country: None (occurrence: None)
  Receive Date: 20040419
  Receipt Date: 20040407
  Transmission Date: 20050107
  Serious: Yes (Other)
  Sender: FDA-Public Use
  Company Number: 2004023995

PATIENT
  Age: 64 Year
  Sex: Male
  Weight: 82.7815 kg

DRUGS (3)
  1. CARDURA [Suspect]
     Indication: HYPERTENSION
     Dosage: 4 MG (BID), ORAL
     Route: 048
     Dates: start: 20040101
  2. DILTIAZEM HYDROCHLORIDE [Suspect]
     Indication: ILL-DEFINED DISORDER
  3. ACETYLSALICYLIC ACID SRT [Concomitant]

REACTIONS (4)
  - EYE PAIN [None]
  - GLAUCOMA [None]
  - VISION BLURRED [None]
  - VISUAL ACUITY REDUCED [None]
